FAERS Safety Report 13205843 (Version 1)
Quarter: 2017Q1

REPORT INFORMATION
  Report Type: Spontaneous
  Country: US (occurrence: US)
  Receive Date: 20170208
  Receipt Date: 20170208
  Transmission Date: 20170428
  Serious: Yes (Other)
  Sender: FDA-Public Use
  Company Number: None

PATIENT
  Age: 33 Year
  Sex: Female

DRUGS (3)
  1. NIZORAL [Suspect]
     Active Substance: KETOCONAZOLE
     Indication: DANDRUFF
     Route: 061
     Dates: start: 20170207, end: 20170207
  2. VITAMIN D [Concomitant]
     Active Substance: CHOLECALCIFEROL
  3. NEXPLANON [Concomitant]
     Active Substance: ETONOGESTREL

REACTIONS (7)
  - Pain [None]
  - Application site erythema [None]
  - Application site inflammation [None]
  - Application site warmth [None]
  - Application site pain [None]
  - Pruritus [None]
  - Inflammation [None]

NARRATIVE: CASE EVENT DATE: 20170207
